FAERS Safety Report 25019118 (Version 1)
Quarter: 2025Q1

REPORT INFORMATION
  Report Type: Spontaneous
  Country: US (occurrence: US)
  Receive Date: 20250227
  Receipt Date: 20250227
  Transmission Date: 20250408
  Serious: Yes (Other)
  Sender: PFIZER
  Company Number: US-PFIZER INC-PV202500023359

PATIENT
  Age: 81 Year
  Sex: Female

DRUGS (1)
  1. XELJANZ [Suspect]
     Active Substance: TOFACITINIB CITRATE
     Dosage: 5 MG ONCE DAILY

REACTIONS (4)
  - Systemic lupus erythematosus [Unknown]
  - Hepatic function abnormal [Unknown]
  - Seasonal allergy [Unknown]
  - Product dose omission in error [Unknown]
